FAERS Safety Report 13290295 (Version 2)
Quarter: 2017Q2

REPORT INFORMATION
  Report Type: Spontaneous
  Country: US (occurrence: US)
  Receive Date: 20170302
  Receipt Date: 20170505
  Transmission Date: 20170830
  Serious: Yes (Other)
  Sender: FDA-Public Use
  Company Number: US-PFIZER INC-2017090039

PATIENT
  Sex: Female

DRUGS (1)
  1. PRISTIQ EXTENDED-RELEASE [Suspect]
     Active Substance: DESVENLAFAXINE SUCCINATE
     Dosage: 25 MG, UNK

REACTIONS (4)
  - Pharyngeal oedema [Recovered/Resolved]
  - Gluten sensitivity [Unknown]
  - Oropharyngeal blistering [Recovered/Resolved]
  - Nightmare [Recovered/Resolved]
